FAERS Safety Report 6958926-0 (Version None)
Quarter: 2010Q3

REPORT INFORMATION
  Report Type: 
  Country: None (occurrence: None)
  Receive Date: 20100831
  Receipt Date: 20100806
  Transmission Date: 20110219
  Serious: Yes (Hospitalization, Other)
  Sender: FDA-Public Use
  Company Number: US-BAYER-201031572NA

PATIENT
  Sex: Female
  Weight: 82 kg

DRUGS (18)
  1. YAZ [Suspect]
     Indication: CONTRACEPTION
     Dates: start: 20020101, end: 20080101
  2. YASMIN [Suspect]
     Indication: CONTRACEPTION
     Dates: start: 20020101, end: 20080101
  3. OCELLA [Suspect]
     Indication: CONTRACEPTION
     Dates: start: 20020101, end: 20080101
  4. MOTRIN [Concomitant]
  5. NEXIUM [Concomitant]
     Dates: start: 20020101
  6. AMOXICILLIN [Concomitant]
  7. FLUCONAZOLE [Concomitant]
  8. HYDROCODONE [Concomitant]
  9. ZAZOLE [Concomitant]
  10. TERCONAZOLE [Concomitant]
  11. NITROFUR MON [Concomitant]
  12. PIROXICAM [Concomitant]
  13. CIPRO [Concomitant]
  14. NEXIUM [Concomitant]
  15. DENAVIR [Concomitant]
  16. OXYCODONE [Concomitant]
  17. LEVAQUIN [Concomitant]
  18. ALDARA [Concomitant]

REACTIONS (3)
  - ABDOMINAL PAIN [None]
  - BACK PAIN [None]
  - CHOLELITHIASIS [None]
